FAERS Safety Report 10862303 (Version 12)
Quarter: 2015Q4

REPORT INFORMATION
  Report Type: Report from Study
  Country: BE (occurrence: BE)
  Receive Date: 20150224
  Receipt Date: 20151102
  Transmission Date: 20160304
  Serious: Yes (Death, Hospitalization, Other)
  Sender: FDA-Public Use
  Company Number: BE-ABBVIE-13P-013-1150130-00

PATIENT
  Age: 65 Year
  Sex: Female

DRUGS (14)
  1. DUODOPA [Suspect]
     Active Substance: CARBIDOPA\LEVODOPA
     Dosage: AM DOSE= 9ML, CONTIN DOSE= 4.9ML/H DURING 16HRS, EXTRA DOSE= 2ML
     Route: 050
     Dates: start: 20130527, end: 20130912
  2. DUODOPA [Suspect]
     Active Substance: CARBIDOPA\LEVODOPA
     Dosage: AM = 11.9 ML, CD = 5.4 ML/H DURING 16H, ED = 2 ML
     Route: 050
     Dates: start: 20141204
  3. DIAZEPAM. [Concomitant]
     Active Substance: DIAZEPAM
     Dosage: 2.5MG
     Dates: start: 20130924, end: 20130924
  4. ANESTHETICS, LOCAL [Concomitant]
     Active Substance: UNSPECIFIED INGREDIENT
     Dates: start: 20130924, end: 20130924
  5. DUODOPA [Suspect]
     Active Substance: CARBIDOPA\LEVODOPA
     Dosage: UNKNOWN
     Route: 050
     Dates: start: 20130924, end: 20140213
  6. DUODOPA [Suspect]
     Active Substance: CARBIDOPA\LEVODOPA
     Indication: PARKINSON^S DISEASE
     Dosage: AM DOSE= 11ML, CONTIN DOSE= 4.1ML/H DURING 16HRS, EXTRA DOSE= 1.5ML
     Route: 050
     Dates: start: 20110110, end: 20110201
  7. DUODOPA [Suspect]
     Active Substance: CARBIDOPA\LEVODOPA
     Dosage: UNKNOWN
     Route: 050
     Dates: end: 20141204
  8. DUODOPA [Suspect]
     Active Substance: CARBIDOPA\LEVODOPA
     Dosage: DOSAGE CONTINUOUSLY MONITORED AND ADJUSTED
     Route: 050
     Dates: start: 20110201, end: 20130527
  9. DIAZEPAM. [Concomitant]
     Active Substance: DIAZEPAM
     Indication: PREMEDICATION
     Dosage: 5MG
     Route: 042
     Dates: start: 20110107, end: 20110107
  10. DUODOPA [Suspect]
     Active Substance: CARBIDOPA\LEVODOPA
     Dosage: AM = 11.9 ML, CONTIN DOSE = 5.4 ML/H DURING 16H, ED = 2 ML
     Route: 050
     Dates: start: 20140213
  11. BUSCOPAN [Concomitant]
     Active Substance: BUTYLSCOPOLAMINE BROMIDE
     Indication: PREMEDICATION
     Dosage: 20MG
     Dates: start: 20110107, end: 20110107
  12. XYLOCAINE [Concomitant]
     Active Substance: LIDOCAINE HYDROCHLORIDE
     Indication: LOCAL ANAESTHESIA
     Dates: start: 20130912, end: 20130912
  13. ANESTHETICS, LOCAL [Concomitant]
     Active Substance: UNSPECIFIED INGREDIENT
     Indication: PREMEDICATION
     Dates: start: 20110110, end: 20110110
  14. PROLOPA [Concomitant]
     Active Substance: BENSERAZIDE\LEVODOPA
     Indication: PARKINSON^S DISEASE
     Dosage: FORM STRENGTH: 100MG/25MG; UNIT DOSE: 2 TABLETS
     Route: 065

REACTIONS (31)
  - General physical health deterioration [Not Recovered/Not Resolved]
  - Bedridden [Unknown]
  - Parenteral nutrition [Unknown]
  - Hiatus hernia [Unknown]
  - Oesophagitis [Recovering/Resolving]
  - Choking [Unknown]
  - Decubitus ulcer [Not Recovered/Not Resolved]
  - Dysphagia [Not Recovered/Not Resolved]
  - Pyrexia [Unknown]
  - General physical health deterioration [Unknown]
  - Hospitalisation [Unknown]
  - Pulmonary oedema [Unknown]
  - Stoma site discharge [Unknown]
  - Impaired gastric emptying [Unknown]
  - Gait disturbance [Unknown]
  - Salivary hypersecretion [Not Recovered/Not Resolved]
  - Aphasia [Not Recovered/Not Resolved]
  - Device issue [Recovered/Resolved]
  - Pneumonia [Unknown]
  - Cystitis [Unknown]
  - Stoma site extravasation [Unknown]
  - Catheter site extravasation [Recovered/Resolved]
  - Parkinson^s disease [Unknown]
  - Death [Fatal]
  - Anaemia [Unknown]
  - Activities of daily living impaired [Unknown]
  - Device occlusion [Unknown]
  - Device dislocation [Unknown]
  - Infection [Unknown]
  - Wheelchair user [Unknown]
  - Stoma site erythema [Unknown]

NARRATIVE: CASE EVENT DATE: 20151010
